FAERS Safety Report 6836249-8 (Version None)
Quarter: 2010Q2

REPORT INFORMATION
  Report Type: 
  Country: None (occurrence: None)
  Receive Date: 20100624
  Receipt Date: 20100324
  Transmission Date: 20101027
  Serious: No
  Sender: FDA-Public Use
  Company Number: DKLU1060575

PATIENT
  Age: 10 Year
  Sex: Female

DRUGS (7)
  1. SABRIL [Suspect]
  2. TOPAMAX [Concomitant]
  3. DIASTAT [Concomitant]
  4. KLONOPIN [Concomitant]
  5. VERSED [Concomitant]
  6. FELBATOL [Concomitant]
  7. PHENOBARBITAL TAB [Concomitant]

REACTIONS (2)
  - HEART RATE DECREASED [None]
  - OXYGEN SATURATION DECREASED [None]
